FAERS Safety Report 7556763-X (Version None)
Quarter: 2011Q2

REPORT INFORMATION
  Report Type: 
  Country: None (occurrence: None)
  Receive Date: 20110620
  Receipt Date: 20110607
  Transmission Date: 20111010
  Serious: Yes (Disabling, Other)
  Sender: FDA-Public Use
  Company Number: US-ELI_LILLY_AND_COMPANY-US201106002990

PATIENT
  Age: 44 Year
  Sex: Male

DRUGS (4)
  1. CYMBALTA [Suspect]
     Indication: DEPRESSION
     Dosage: 60 MG, BID
     Dates: start: 20060101
  2. PERCOCET [Concomitant]
  3. ANTIHYPERTENSIVES [Concomitant]
     Indication: HYPERTENSION
  4. MORPHINE [Concomitant]

REACTIONS (6)
  - BACK PAIN [None]
  - MUSCLE DISORDER [None]
  - SHOULDER ARTHROPLASTY [None]
  - ATTENTION DEFICIT/HYPERACTIVITY DISORDER [None]
  - RENAL CANCER [None]
  - HERNIA REPAIR [None]
